FAERS Safety Report 10011793 (Version 2)
Quarter: 2014Q2

REPORT INFORMATION
  Report Type: Spontaneous
  Country: US (occurrence: US)
  Receive Date: 20140314
  Receipt Date: 20140417
  Transmission Date: 20141212
  Serious: Yes (Hospitalization, Other)
  Sender: FDA-Public Use
  Company Number: US-JNJFOC-20140305677

PATIENT
  Age: 43 Year
  Sex: Female

DRUGS (2)
  1. INVOKANA [Suspect]
     Indication: PRODUCT USED FOR UNKNOWN INDICATION
     Route: 048
  2. METFORMIN [Concomitant]

REACTIONS (3)
  - Metabolic acidosis [Unknown]
  - Ketoacidosis [Unknown]
  - Dehydration [Unknown]
